FAERS Safety Report 23460124 (Version 1)
Quarter: 2024Q1

REPORT INFORMATION
  Report Type: Spontaneous
  Country: PT (occurrence: PT)
  Receive Date: 20240131
  Receipt Date: 20240131
  Transmission Date: 20240410
  Serious: Yes (Other)
  Sender: FDA-Public Use
  Company Number: None

PATIENT
  Age: 31 Year
  Sex: Female

DRUGS (7)
  1. CARBOPLATIN [Suspect]
     Active Substance: CARBOPLATIN
     Indication: Breast cancer
     Dosage: 219.12 MG DILUTED IN 250 ML OF SF, INFUSION FOR 1 HOUR
     Dates: start: 20231228, end: 20231228
  2. CLEMASTINE [Concomitant]
     Active Substance: CLEMASTINE
  3. ONDANSETRON [Concomitant]
     Active Substance: ONDANSETRON
  4. PEMBROLIZUMAB [Concomitant]
     Active Substance: PEMBROLIZUMAB
  5. PACLITAXEL [Concomitant]
     Active Substance: PACLITAXEL
  6. DEXAMETHASONE [Concomitant]
     Active Substance: DEXAMETHASONE
  7. HYDROCORTISONE [Concomitant]
     Active Substance: HYDROCORTISONE

REACTIONS (3)
  - Erythema [Recovered/Resolved]
  - Discomfort [Recovered/Resolved]
  - Feeling hot [Recovered/Resolved]

NARRATIVE: CASE EVENT DATE: 20231228
